FAERS Safety Report 4600034-8 (Version None)
Quarter: 2005Q1

REPORT INFORMATION
  Report Type: 
  Country: None (occurrence: None)
  Receive Date: 20050303
  Receipt Date: 20050223
  Transmission Date: 20050727
  Serious: Yes (Other)
  Sender: FDA-Public Use
  Company Number: 2005-02-1365

PATIENT
  Age: 61 Year
  Sex: Male

DRUGS (1)
  1. CELESTONE SOLUSPAN [Suspect]
     Indication: OSTEOARTHRITIS
     Dates: start: 20041212, end: 20041227

REACTIONS (2)
  - ERECTILE DYSFUNCTION [None]
  - LIBIDO DECREASED [None]
